FAERS Safety Report 8908836 (Version 1)
Quarter: 2012Q4

REPORT INFORMATION
  Report Type: 
  Country: US (occurrence: US)
  Receive Date: 20121113
  Receipt Date: 20121113
  Transmission Date: 20130627
  Serious: No
  Sender: FDA-Public Use
  Company Number: US-AMGEN-USASP2012011759

PATIENT
  Age: 50 Year
  Sex: Female

DRUGS (2)
  1. ENBREL [Suspect]
     Indication: PSORIATIC ARTHROPATHY
     Dosage: UNK
     Dates: start: 20111101, end: 201112
  2. HUMIRA [Concomitant]

REACTIONS (2)
  - Urticaria [Not Recovered/Not Resolved]
  - Rash pustular [Not Recovered/Not Resolved]
